FAERS Safety Report 21170673 (Version 1)
Quarter: 2022Q3

REPORT INFORMATION
  Report Type: Spontaneous
  Country: CH (occurrence: CH)
  Receive Date: 20220804
  Receipt Date: 20220804
  Transmission Date: 20221027
  Serious: Yes (Hospitalization, Other)
  Sender: FDA-Public Use
  Company Number: CH-MYLANLABS-2022M1082160

PATIENT
  Age: 62 Year
  Sex: Male
  Weight: 54 kg

DRUGS (8)
  1. EFAVIRENZ\EMTRICITABINE\TENOFOVIR DISOPROXIL FUMARATE [Suspect]
     Active Substance: EFAVIRENZ\EMTRICITABINE\TENOFOVIR DISOPROXIL FUMARATE
     Indication: HIV infection
     Dosage: UNK
     Route: 065
  2. IBUPROFEN [Suspect]
     Active Substance: IBUPROFEN
     Indication: Evidence based treatment
     Dosage: UNK
     Route: 065
  3. TORSEMIDE [Suspect]
     Active Substance: TORSEMIDE
     Indication: Evidence based treatment
     Dosage: UNK
     Route: 065
  4. AMPHOTERICIN B [Concomitant]
     Active Substance: AMPHOTERICIN B
     Indication: Visceral leishmaniasis
     Dosage: 4 MILLIGRAM/KILOGRAM (ON DAYS 1 TO 5 FOR 5 WEEKS)
     Route: 042
  5. AMPHOTERICIN B [Concomitant]
     Active Substance: AMPHOTERICIN B
     Indication: Prophylaxis
     Dosage: 40 MILLIGRAM/KILOGRAM, QW (WEEKLY INTERVALS OVER A TOTAL OF FIVE WEEKS)
     Route: 042
  6. DOLUTEGRAVIR [Concomitant]
     Active Substance: DOLUTEGRAVIR
     Indication: HIV infection
     Dosage: UNK
     Route: 065
  7. DARUNAVIR\RITONAVIR [Concomitant]
     Active Substance: DARUNAVIR\RITONAVIR
     Indication: HIV infection
     Dosage: UNK
     Route: 065
  8. LAMIVUDINE [Concomitant]
     Active Substance: LAMIVUDINE
     Indication: HIV infection
     Dosage: UNK
     Route: 065

REACTIONS (3)
  - Renal failure [Recovered/Resolved]
  - Kidney fibrosis [Recovered/Resolved]
  - Drug ineffective [Unknown]
